FAERS Safety Report 19056640 (Version 1)
Quarter: 2021Q1

REPORT INFORMATION
  Report Type: Spontaneous
  Country: US (occurrence: US)
  Receive Date: 20210325
  Receipt Date: 20210325
  Transmission Date: 20210420
  Serious: Yes (Hospitalization)
  Sender: FDA-Public Use
  Company Number: US-FERRINGPH-2021FE01326

PATIENT
  Age: 33 Year
  Sex: Female
  Weight: 63 kg

DRUGS (2)
  1. ENDOMETRIN [Suspect]
     Active Substance: PROGESTERONE
     Indication: SHORTENED CERVIX
     Dosage: 200 MG, 2 TIMES DAILY, ONLY TOOK FOR ONE DAY
     Route: 065
     Dates: start: 202011
  2. ENDOMETRIN [Suspect]
     Active Substance: PROGESTERONE
     Dosage: 400 MG, 1 TIME DAILY
     Route: 065

REACTIONS (10)
  - Product use in unapproved indication [Not Recovered/Not Resolved]
  - Condition aggravated [Unknown]
  - Fatigue [Unknown]
  - Dizziness [Unknown]
  - Headache [Unknown]
  - Premature labour [Unknown]
  - Prescribed overdose [Not Recovered/Not Resolved]
  - Nausea [Unknown]
  - Off label use [Not Recovered/Not Resolved]
  - Inappropriate schedule of product administration [Not Recovered/Not Resolved]

NARRATIVE: CASE EVENT DATE: 202011
